FAERS Safety Report 4774008-0 (Version None)
Quarter: 2005Q3

REPORT INFORMATION
  Report Type: 
  Country: None (occurrence: None)
  Receive Date: 20050919
  Receipt Date: 20050906
  Transmission Date: 20060218
  Serious: Yes (Hospitalization)
  Sender: FDA-Public Use
  Company Number: HQWYE283807SEP05

PATIENT
  Age: 74 Year
  Sex: Female
  Weight: 80 kg

DRUGS (1)
  1. MYLOTARG [Suspect]
     Indication: ACUTE MYELOID LEUKAEMIA
     Dosage: INTRAVENOUS
     Route: 042
     Dates: start: 20050810, end: 20050810

REACTIONS (5)
  - BLOOD CULTURE POSITIVE [None]
  - CLOSTRIDIUM DIFFICILE TOXIN TEST POSITIVE [None]
  - CULTURE STOOL POSITIVE [None]
  - ENTEROCOCCAL INFECTION [None]
  - INFECTION [None]
